FAERS Safety Report 16450736 (Version 1)
Quarter: 2019Q2

REPORT INFORMATION
  Report Type: Spontaneous
  Country: TH (occurrence: TH)
  Receive Date: 20190619
  Receipt Date: 20190619
  Transmission Date: 20190711
  Serious: Yes (Hospitalization, Other)
  Sender: FDA-Public Use
  Company Number: PHHY2019TH138593

PATIENT
  Age: 25 Year
  Sex: Female

DRUGS (2)
  1. EVEROLIMUS. [Suspect]
     Active Substance: EVEROLIMUS
     Indication: NEUROENDOCRINE TUMOUR
     Dosage: 10 MG, QD, 21 MONTH
     Route: 065
     Dates: start: 20140107, end: 20151006
  2. SUNITINIB [Suspect]
     Active Substance: SUNITINIB
     Indication: NEUROENDOCRINE TUMOUR
     Dosage: 37.5 MG, QD, 7 MONTH
     Route: 048
     Dates: start: 20151006, end: 20160504

REACTIONS (4)
  - Malignant neoplasm progression [Unknown]
  - Cholangitis [Unknown]
  - Jaundice cholestatic [Unknown]
  - Neuroendocrine tumour [Unknown]
